FAERS Safety Report 5708602-7 (Version None)
Quarter: 2008Q2

REPORT INFORMATION
  Report Type: 
  Country: None (occurrence: None)
  Receive Date: 20080417
  Receipt Date: 20080409
  Transmission Date: 20081010
  Serious: Yes (Hospitalization)
  Sender: FDA-Public Use
  Company Number: DE-ABBOTT-08P-062-0446447-00

PATIENT
  Sex: Female

DRUGS (3)
  1. HUMIRA [Suspect]
     Indication: CROHN'S DISEASE
     Route: 058
     Dates: start: 20080305, end: 20080319
  2. AMINOSALICYLIC ACID [Concomitant]
     Indication: CROHN'S DISEASE
  3. CORTISONE [Concomitant]
     Indication: CROHN'S DISEASE

REACTIONS (1)
  - PERIANAL ABSCESS [None]
